FAERS Safety Report 17768994 (Version 8)
Quarter: 2022Q1

REPORT INFORMATION
  Report Type: Spontaneous
  Country: US (occurrence: US)
  Receive Date: 20200512
  Receipt Date: 20220223
  Transmission Date: 20220423
  Serious: Yes (Hospitalization, Other)
  Sender: FDA-Public Use
  Company Number: US-PFIZER INC-2020188417

PATIENT
  Age: 61 Year
  Sex: Female

DRUGS (8)
  1. XELJANZ XR [Suspect]
     Active Substance: TOFACITINIB CITRATE
     Indication: Rheumatoid arthritis
     Dosage: 11 MG, DAILY
     Route: 048
     Dates: start: 201906, end: 2020
  2. XELJANZ XR [Suspect]
     Active Substance: TOFACITINIB CITRATE
     Indication: Psoriatic arthropathy
     Dosage: 11 MG,(EVERY OTHER TO EVERY TWO DAYS)
  3. XELJANZ XR [Suspect]
     Active Substance: TOFACITINIB CITRATE
     Dosage: 11 MG,(EVERY OTHER TO EVERY TWO DAYS)
  4. XELJANZ XR [Suspect]
     Active Substance: TOFACITINIB CITRATE
     Dosage: 11 MG, DAILY
     Route: 048
  5. XELJANZ XR [Suspect]
     Active Substance: TOFACITINIB CITRATE
     Dosage: 11 MG,(ONE EVERY OTHER DAY)
  6. METHOTREXATE [Concomitant]
     Active Substance: METHOTREXATE
  7. COVID-19 VACCINE [Concomitant]
     Dosage: UNK
     Dates: start: 20210202
  8. COVID-19 VACCINE [Concomitant]
     Dosage: UNK
     Dates: start: 20210224

REACTIONS (7)
  - Urinary tract infection [Unknown]
  - Illness [Unknown]
  - Osteomyelitis [Unknown]
  - Condition aggravated [Unknown]
  - Product dose omission in error [Unknown]
  - Intentional product misuse [Unknown]
  - Psoriasis [Unknown]

NARRATIVE: CASE EVENT DATE: 20200101
